FAERS Safety Report 24270929 (Version 3)
Quarter: 2024Q3

REPORT INFORMATION
  Report Type: Report from Study
  Country: DE (occurrence: DE)
  Receive Date: 20240831
  Receipt Date: 20240920
  Transmission Date: 20241017
  Serious: Yes (Hospitalization)
  Sender: ABBVIE
  Company Number: DE-ABBVIE-5889272

PATIENT
  Sex: Male

DRUGS (2)
  1. CARBIDOPA\LEVODOPA [Suspect]
     Active Substance: CARBIDOPA\LEVODOPA
     Indication: Parkinson^s disease
     Dosage: CRM: MD 11.0 ML; CRD 5.0 ML/H; ED 2.0 ML
     Route: 050
     Dates: start: 20190613
  2. CARBIDOPA\LEVODOPA [Suspect]
     Active Substance: CARBIDOPA\LEVODOPA
     Dosage: MD: 11.0 ML; CRD: 5.0 ML/H; CRN: 3.5 ML/H; ED: 2.0 ML
     Route: 050

REACTIONS (8)
  - Dysphagia [Not Recovered/Not Resolved]
  - Acute abdomen [Unknown]
  - Akinesia [Not Recovered/Not Resolved]
  - Ileus [Not Recovered/Not Resolved]
  - Sepsis [Not Recovered/Not Resolved]
  - Enteral nutrition [Unknown]
  - Gastrointestinal disorder [Unknown]
  - Volvulus [Unknown]

NARRATIVE: CASE EVENT DATE: 20240101
